FAERS Safety Report 15762351 (Version 5)
Quarter: 2019Q1

REPORT INFORMATION
  Report Type: Spontaneous
  Country: IT (occurrence: IT)
  Receive Date: 20181226
  Receipt Date: 20190131
  Transmission Date: 20190417
  Serious: Yes (Death, Hospitalization)
  Sender: FDA-Public Use
  Company Number: IT-JNJFOC-20181222783

PATIENT
  Age: 78 Year
  Sex: Male
  Weight: 73 kg

DRUGS (2)
  1. COUMADIN [Concomitant]
     Active Substance: WARFARIN SODIUM
     Route: 065
  2. YONDELIS [Suspect]
     Active Substance: TRABECTEDIN
     Indication: DEDIFFERENTIATED LIPOSARCOMA
     Route: 042
     Dates: start: 20181024, end: 20181115

REACTIONS (8)
  - Acute pulmonary oedema [Fatal]
  - Dyspnoea [Fatal]
  - Urine output decreased [Fatal]
  - Neuromuscular toxicity [Fatal]
  - Hepatotoxicity [Fatal]
  - Rhabdomyolysis [Fatal]
  - Bone marrow toxicity [Fatal]
  - Renal failure [Fatal]

NARRATIVE: CASE EVENT DATE: 20181128
